FAERS Safety Report 8525111-0 (Version None)
Quarter: 2012Q3

REPORT INFORMATION
  Report Type: 
  Country: None (occurrence: None)
  Receive Date: 20120720
  Receipt Date: 20120706
  Transmission Date: 20120928
  Serious: No
  Sender: FDA-Public Use
  Company Number: AU-JNJFOC-20120515221

PATIENT
  Sex: Male

DRUGS (4)
  1. REMICADE [Suspect]
     Indication: CROHN'S DISEASE
     Route: 042
     Dates: start: 20120501
  2. REMICADE [Suspect]
     Route: 042
     Dates: start: 20120515
  3. REMICADE [Suspect]
     Route: 042
     Dates: start: 20120515
  4. REMICADE [Suspect]
     Indication: COLITIS ULCERATIVE
     Route: 042
     Dates: start: 20120501

REACTIONS (1)
  - RASH PUSTULAR [None]
